FAERS Safety Report 15649723 (Version 1)
Quarter: 2018Q4

REPORT INFORMATION
  Report Type: Spontaneous
  Country: US (occurrence: US)
  Receive Date: 20181122
  Receipt Date: 20181122
  Transmission Date: 20190205
  Serious: No
  Sender: FDA-Public Use
  Company Number: US-SHIRE-US201845230

PATIENT
  Age: 45 Year
  Sex: Female

DRUGS (1)
  1. XIIDRA [Suspect]
     Active Substance: LIFITEGRAST
     Indication: DRY EYE
     Route: 047
     Dates: start: 20181113

REACTIONS (4)
  - Instillation site dryness [Unknown]
  - Instillation site discharge [Unknown]
  - Headache [Recovered/Resolved]
  - Instillation site lacrimation [Unknown]
